FAERS Safety Report 5403005-7 (Version None)
Quarter: 2007Q3

REPORT INFORMATION
  Report Type: 
  Country: None (occurrence: None)
  Receive Date: 20070713
  Receipt Date: 20060710
  Transmission Date: 20080115
  Serious: Yes (Disabling)
  Sender: FDA-Public Use
  Company Number: 455018

PATIENT
  Age: 92 Year
  Sex: Female
  Weight: 58.5 kg

DRUGS (1)
  1. BONIVA [Suspect]
     Indication: OSTEOPOROSIS
     Dosage: 1 PER MONTH ORAL
     Route: 048
     Dates: start: 20060222, end: 20060723

REACTIONS (4)
  - BLADDER DISORDER [None]
  - DIARRHOEA [None]
  - PAIN IN EXTREMITY [None]
  - STOMACH DISCOMFORT [None]
